FAERS Safety Report 18767747 (Version 1)
Quarter: 2021Q1

REPORT INFORMATION
  Report Type: Spontaneous
  Country: US (occurrence: US)
  Receive Date: 20210120
  Receipt Date: 20210120
  Transmission Date: 20210419
  Serious: No
  Sender: FDA-Public Use
  Company Number: None

PATIENT
  Age: 63 Year
  Sex: Male
  Weight: 100.7 kg

DRUGS (3)
  1. TAMSULOSIN 0.4MG [Concomitant]
     Active Substance: TAMSULOSIN
  2. IAMSULOSIN 0.4MG [Concomitant]
  3. TADALAFIL 5MG [Suspect]
     Active Substance: TADALAFIL
     Indication: BENIGN PROSTATIC HYPERPLASIA
     Dates: start: 20200527

REACTIONS (3)
  - Micturition urgency [None]
  - Headache [None]
  - Urinary incontinence [None]

NARRATIVE: CASE EVENT DATE: 20200327
